FAERS Safety Report 9221596 (Version 2)
Quarter: 2013Q2

REPORT INFORMATION
  Report Type: Spontaneous
  Country: DE (occurrence: None)
  Receive Date: 20130408
  Receipt Date: 20130618
  Transmission Date: 20140414
  Serious: Yes (Hospitalization)
  Sender: FDA-Public Use
  Company Number: DE-011345

PATIENT
  Age: 51 Year
  Sex: Female

DRUGS (2)
  1. MENOGON [Suspect]
     Indication: IN VITRO FERTILISATION
     Dosage: 1 X 2 VIALS
     Route: 030
     Dates: start: 20130316, end: 20130316
  2. METRELEF [Suspect]
     Indication: IN VITRO FERTILISATION
     Dosage: 4 X 1 NASAL
     Route: 045
     Dates: start: 20130314, end: 20130316

REACTIONS (4)
  - Blood pressure increased [None]
  - Headache [None]
  - Nausea [None]
  - Tremor [None]
